FAERS Safety Report 15062024 (Version 4)
Quarter: 2019Q1

REPORT INFORMATION
  Report Type: Report from Study
  Country: US (occurrence: US)
  Receive Date: 20180625
  Receipt Date: 20190322
  Transmission Date: 20190417
  Serious: Yes (Hospitalization)
  Sender: FDA-Public Use
  Company Number: US-ACTELION-A-NJ2018-169565

PATIENT
  Age: 61 Year
  Sex: Female

DRUGS (3)
  1. OPSUMIT [Suspect]
     Active Substance: MACITENTAN
     Indication: PULMONARY ARTERIAL HYPERTENSION
     Dosage: 10 MG, QD
     Route: 048
     Dates: start: 20170309
  2. TORSEMIDE. [Concomitant]
     Active Substance: TORSEMIDE
  3. SILDENAFIL. [Concomitant]
     Active Substance: SILDENAFIL

REACTIONS (10)
  - Sepsis [Recovering/Resolving]
  - Pulmonary arterial wedge pressure increased [Unknown]
  - Dry mouth [Unknown]
  - Dry skin [Unknown]
  - Oedema peripheral [Not Recovered/Not Resolved]
  - Oedema [Recovering/Resolving]
  - Pneumonia [Unknown]
  - Infection [Unknown]
  - Coma [Recovering/Resolving]
  - Fluid overload [Unknown]

NARRATIVE: CASE EVENT DATE: 20180308
